FAERS Safety Report 6648951-1 (Version None)
Quarter: 2010Q1

REPORT INFORMATION
  Report Type: 
  Country: None (occurrence: None)
  Receive Date: 20100319
  Receipt Date: 20100309
  Transmission Date: 20100710
  Serious: Yes (Other)
  Sender: FDA-Public Use
  Company Number: 008457

PATIENT
  Sex: Female

DRUGS (1)
  1. KEPPRA [Suspect]
     Dosage: (500 MG BID)

REACTIONS (6)
  - BLIGHTED OVUM [None]
  - CONVERSION DISORDER [None]
  - DRUG EXPOSURE DURING PREGNANCY [None]
  - MENTAL DISORDER [None]
  - PREGNANCY [None]
  - TREATMENT NONCOMPLIANCE [None]
